FAERS Safety Report 16398248 (Version 1)
Quarter: 2019Q3

REPORT INFORMATION
  Report Type: Spontaneous
  Country: US (occurrence: US)
  Receive Date: 20190604
  Receipt Date: 20190604
  Transmission Date: 20191004
  Serious: No
  Sender: FDA-Public Use
  Company Number: None

PATIENT
  Age: 16 Year
  Sex: Female
  Weight: 45 kg

DRUGS (2)
  1. PAIN STICK [CBD\MENTHOL] [Suspect]
     Active Substance: CANNABIDIOL\HERBALS\MENTHOL
  2. PURE ALOE VERA GEL HEADACHE + SORE MUSCLES RUB [CBD] [Suspect]
     Active Substance: CANNABIDIOL\HERBALS
     Indication: HEADACHE
     Dosage: ?          QUANTITY:1 OUNCE(S);?
     Route: 061
     Dates: start: 20190501, end: 20190601

REACTIONS (3)
  - Product use complaint [None]
  - Product formulation issue [None]
  - Application site pain [None]

NARRATIVE: CASE EVENT DATE: 20190601
